FAERS Safety Report 8454258 (Version 2)
Quarter: 2012Q4

REPORT INFORMATION
  Report Type: Report from Study
  Country: US (occurrence: US)
  Receive Date: 20120312
  Receipt Date: 20121106
  Transmission Date: 20130627
  Serious: Yes (Death)
  Sender: FDA-Public Use
  Company Number: US-JNJFOC-20120302382

PATIENT
  Age: 56 Year
  Sex: Female
  Weight: 149.69 kg

DRUGS (4)
  1. INFLIXIMAB, RECOMBINANT [Suspect]
     Indication: PSORIASIS
     Route: 042
     Dates: start: 20080530
  2. ALL OTHER MEDICATIONS [Concomitant]
     Dates: start: 20080530
  3. METHOTREXATE [Concomitant]
  4. TACLONEX [Concomitant]

REACTIONS (1)
  - Pulmonary embolism [Fatal]
